FAERS Safety Report 15501792 (Version 3)
Quarter: 2019Q2

REPORT INFORMATION
  Report Type: Spontaneous
  Country: US (occurrence: US)
  Receive Date: 20181015
  Receipt Date: 20190403
  Transmission Date: 20190711
  Serious: No
  Sender: FDA-Public Use
  Company Number: US-AMGEN-USASP2018112846

PATIENT
  Age: 1 Year
  Sex: Male
  Weight: 9 kg

DRUGS (1)
  1. EPOGEN [Suspect]
     Active Substance: ERYTHROPOIETIN
     Indication: RENAL FAILURE
     Dosage: 1000 UNIT, 3 TIMES/WK (AFTER EACH DIALYSIS, TUESDAY, THURSDAY AND SATURDAY)
     Route: 042

REACTIONS (2)
  - Serum ferritin increased [Not Recovered/Not Resolved]
  - Drug ineffective [Not Recovered/Not Resolved]
